FAERS Safety Report 14950492 (Version 2)
Quarter: 2018Q2

REPORT INFORMATION
  Report Type: Spontaneous
  Country: US (occurrence: US)
  Receive Date: 20180530
  Receipt Date: 20180620
  Transmission Date: 20180711
  Serious: Yes (Other)
  Sender: FDA-Public Use
  Company Number: PHEH2018US020421

PATIENT
  Age: 62 Year
  Sex: Female

DRUGS (2)
  1. ZITHROMAX [Concomitant]
     Active Substance: AZITHROMYCIN DIHYDRATE
     Indication: PRODUCT USED FOR UNKNOWN INDICATION
     Route: 065
  2. AFINITOR [Suspect]
     Active Substance: EVEROLIMUS
     Indication: CARCINOID TUMOUR
     Dosage: UNK
     Route: 065

REACTIONS (15)
  - Confusional state [Unknown]
  - Bone pain [Unknown]
  - Depressed mood [Unknown]
  - Rales [Unknown]
  - Stress [Unknown]
  - Oedema peripheral [Unknown]
  - Back pain [Unknown]
  - Joint swelling [Unknown]
  - Arthralgia [Unknown]
  - Haemorrhage [Unknown]
  - Haematotoxicity [Unknown]
  - Temperature intolerance [Unknown]
  - Thrombocytopenia [Unknown]
  - Amnesia [Unknown]
  - Contusion [Unknown]

NARRATIVE: CASE EVENT DATE: 20180403
